FAERS Safety Report 4728634-5 (Version None)
Quarter: 2005Q3

REPORT INFORMATION
  Report Type: 
  Country: None (occurrence: None)
  Receive Date: 20050727
  Receipt Date: 20050718
  Transmission Date: 20060218
  Serious: Yes (Death, Other)
  Sender: FDA-Public Use
  Company Number: 2005-07-1404

PATIENT
  Age: 58 Year
  Sex: Female

DRUGS (5)
  1. INTRON A [Suspect]
     Indication: B-CELL LYMPHOMA
     Dosage: 3MIU/M^2 QD; SUBCUTANEOUS
     Route: 058
  2. FLUDARABINE INJECTABLE [Suspect]
     Indication: B-CELL LYMPHOMA
     Dosage: 25MG/M2; INTRAVENOUS
     Route: 042
  3. MITOXANTRONE INJECTABLE [Suspect]
     Indication: B-CELL LYMPHOMA
     Dosage: 10MG/M2; INTRAVENOUS
     Route: 042
  4. DEXAMETHASONE [Suspect]
     Indication: B-CELL LYMPHOMA
     Dosage: 20MG Q4WK; UNKNOWN (8 CYCLE(S))
  5. RITUXIMAB [Suspect]
     Indication: B-CELL LYMPHOMA
     Dosage: 325MG/M2 QM; INTRAVENOUS
     Route: 042

REACTIONS (3)
  - HAEMORRHAGE INTRACRANIAL [None]
  - MYELODYSPLASTIC SYNDROME [None]
  - REFRACTORY ANAEMIA WITH RINGED SIDEROBLASTS [None]
